FAERS Safety Report 17368079 (Version 1)
Quarter: 2020Q1

REPORT INFORMATION
  Report Type: Spontaneous
  Country: US (occurrence: US)
  Receive Date: 20200120
  Receipt Date: 20200120
  Transmission Date: 20200409
  Serious: Yes (Death)
  Sender: FDA-Public Use
  Company Number: None

PATIENT

DRUGS (1)
  1. CANASA [Suspect]
     Active Substance: MESALAMINE
     Indication: PROCTITIS
     Route: 054
     Dates: start: 20190924, end: 20200114

REACTIONS (5)
  - Product use complaint [None]
  - Urinary tract infection [None]
  - Product use issue [None]
  - Proctitis [None]
  - Condition aggravated [None]

NARRATIVE: CASE EVENT DATE: 20200114
